FAERS Safety Report 9095770 (Version 1)
Quarter: 2013Q1

REPORT INFORMATION
  Report Type: Spontaneous
  Country: US (occurrence: US)
  Receive Date: 20130219
  Receipt Date: 20130219
  Transmission Date: 20140127
  Serious: Yes (Death, Life-Threatening, Hospitalization, Other)
  Sender: FDA-Public Use
  Company Number: US-MILLENNIUM PHARMACEUTICALS, INC.-2013-01240

PATIENT
  Sex: Male

DRUGS (1)
  1. VELCADE [Suspect]
     Indication: PLASMA CELL MYELOMA
     Dosage: UNK
     Route: 065

REACTIONS (5)
  - Respiratory failure [Fatal]
  - Lactic acidosis [Unknown]
  - Pulmonary alveolar haemorrhage [Unknown]
  - Neuropathy peripheral [Unknown]
  - Fatigue [Unknown]
